FAERS Safety Report 6258925-0 (Version None)
Quarter: 2009Q3

REPORT INFORMATION
  Report Type: 
  Country: None (occurrence: None)
  Receive Date: 20090707
  Receipt Date: 20090622
  Transmission Date: 20100115
  Serious: Yes (Life-Threatening, Hospitalization)
  Sender: FDA-Public Use
  Company Number: FR-GENENTECH-244552

PATIENT
  Age: 75 Year
  Sex: Female

DRUGS (7)
  1. HERCEPTIN [Suspect]
     Indication: BREAST CANCER
     Dosage: 9 MG/KG, UNK
     Route: 042
     Dates: start: 20050905, end: 20060808
  2. TAXOL [Suspect]
     Indication: BREAST CANCER
     Dosage: 80 MG/M2, UNK
     Route: 042
     Dates: start: 20050905, end: 20060109
  3. HYDREA [Suspect]
     Indication: THROMBOCYTOPENIA
     Dosage: 500 MG, QD
     Route: 048
     Dates: start: 19950615, end: 19991130
  4. CARBOPLATIN [Suspect]
     Indication: BREAST CANCER
     Dosage: 300 MG, UNK
     Route: 042
     Dates: start: 20050905, end: 20060109
  5. ARIMIDEX [Suspect]
     Indication: BREAST CANCER
     Dosage: UNK
     Route: 048
     Dates: start: 20060414, end: 20060901
  6. ANAGRELIDE HYDROCHLORIDE [Suspect]
     Indication: THROMBOCYTOSIS
     Dosage: UNK
     Route: 048
     Dates: start: 19990401, end: 20030601
  7. VERCYTE [Suspect]
     Indication: THROMBOCYTOSIS
     Dosage: UNK
     Route: 048
     Dates: start: 19991201, end: 20060801

REACTIONS (1)
  - ACUTE MYELOID LEUKAEMIA [None]
